FAERS Safety Report 12750668 (Version 9)
Quarter: 2018Q3

REPORT INFORMATION
  Report Type: Spontaneous
  Country: US (occurrence: US)
  Receive Date: 20160916
  Receipt Date: 20180917
  Transmission Date: 20181010
  Serious: No
  Sender: FDA-Public Use
  Company Number: US-ACTELION-A-NJ2016-142127

PATIENT
  Age: 51 Year
  Sex: Male
  Weight: 71.2 kg

DRUGS (7)
  1. VELETRI [Suspect]
     Active Substance: EPOPROSTENOL
     Indication: PULMONARY ARTERIAL HYPERTENSION
     Dosage: 38.7 NG/KG, PER MIN
     Route: 042
     Dates: start: 20110810
  2. VELETRI [Suspect]
     Active Substance: EPOPROSTENOL
     Dosage: 40 NG/KG, PER MIN
     Route: 042
  3. COUMADIN [Concomitant]
     Active Substance: WARFARIN SODIUM
  4. VELETRI [Suspect]
     Active Substance: EPOPROSTENOL
     Dosage: 50 NG/KG, UNK
     Route: 042
  5. DILTIAZEM. [Concomitant]
     Active Substance: DILTIAZEM
  6. VELETRI [Suspect]
     Active Substance: EPOPROSTENOL
     Dosage: 41 NG/KG, PER MIN
     Route: 042
  7. REVATIO [Concomitant]
     Active Substance: SILDENAFIL CITRATE

REACTIONS (15)
  - Chest pain [Unknown]
  - Peripheral coldness [Unknown]
  - Pain in jaw [Unknown]
  - Dyspnoea exertional [Unknown]
  - Palpitations [Unknown]
  - Drug administration error [Unknown]
  - Dyspnoea at rest [Unknown]
  - Pallor [Unknown]
  - Arthralgia [Unknown]
  - Diarrhoea [Unknown]
  - Underdose [Recovering/Resolving]
  - Device infusion issue [Unknown]
  - Pain in extremity [Unknown]
  - Thrombosis in device [Unknown]
  - Flushing [Unknown]

NARRATIVE: CASE EVENT DATE: 20170316
